FAERS Safety Report 6007622-5 (Version None)
Quarter: 2008Q4

REPORT INFORMATION
  Report Type: 
  Country: None (occurrence: None)
  Receive Date: 20081217
  Receipt Date: 20080324
  Transmission Date: 20090506
  Serious: No
  Sender: FDA-Public Use
  Company Number: US-ASTRAZENECA-2008UW05891

PATIENT
  Age: 87 Year
  Sex: Female
  Weight: 78 kg

DRUGS (7)
  1. CRESTOR [Suspect]
     Indication: BLOOD CHOLESTEROL INCREASED
     Dates: start: 20071201
  2. NEXIUM [Concomitant]
  3. ZETIA [Concomitant]
  4. MECLIZINE [Concomitant]
  5. SYNTHROID [Concomitant]
  6. METOPROLOL TARTRATE [Concomitant]
  7. DETROL [Concomitant]

REACTIONS (1)
  - NEUROPATHY PERIPHERAL [None]
